FAERS Safety Report 7715773-X (Version None)
Quarter: 2011Q3

REPORT INFORMATION
  Report Type: 
  Country: None (occurrence: None)
  Receive Date: 20110812
  Receipt Date: 20110614
  Transmission Date: 20111222
  Serious: Yes (Hospitalization)
  Sender: FDA-Public Use
  Company Number: MEDI-0012986

PATIENT
  Age: 6 Month
  Sex: Male

DRUGS (8)
  1. SYNAGIS [Suspect]
     Dates: start: 20101028, end: 20110308
  2. PULMICORT [Concomitant]
  3. PREVACID [Concomitant]
  4. NYSTATIN [Concomitant]
  5. XOPENEX (LEVOSALBUTAMOL HYDROCHLORIDE) [Concomitant]
  6. SILDENAFIL CITRATE [Concomitant]
  7. GENTAMICIN [Concomitant]
  8. DIAMOX [Concomitant]

REACTIONS (1)
  - RESPIRATORY SYNCYTIAL VIRUS TEST POSITIVE [None]
